FAERS Safety Report 11138772 (Version 2)
Quarter: 2016Q1

REPORT INFORMATION
  Report Type: Spontaneous
  Country: US (occurrence: US)
  Receive Date: 20150527
  Receipt Date: 20160219
  Transmission Date: 20160525
  Serious: Yes (Death, Other)
  Sender: FDA-Public Use
  Company Number: US-ASTRAZENECA-2014SE18785

PATIENT
  Age: 25928 Day
  Sex: Male
  Weight: 77.1 kg

DRUGS (20)
  1. ATENOLOL. [Concomitant]
     Active Substance: ATENOLOL
     Dates: start: 20071114
  2. ZYPREXA [Concomitant]
     Active Substance: OLANZAPINE
  3. ATIVAN [Concomitant]
     Active Substance: LORAZEPAM
     Route: 048
  4. NITROSTAT [Concomitant]
     Active Substance: NITROGLYCERIN
     Route: 060
  5. ZETIA [Concomitant]
     Active Substance: EZETIMIBE
     Dates: start: 20071114
  6. BYETTA [Suspect]
     Active Substance: EXENATIDE
     Indication: TYPE 2 DIABETES MELLITUS
     Route: 058
     Dates: start: 20090224
  7. BYETTA [Suspect]
     Active Substance: EXENATIDE
     Indication: TYPE 2 DIABETES MELLITUS
     Route: 065
     Dates: start: 20070806
  8. FUROSEMIDE. [Concomitant]
     Active Substance: FUROSEMIDE
  9. METFORMIN [Concomitant]
     Active Substance: METFORMIN HYDROCHLORIDE
  10. PRAVACHOL [Concomitant]
     Active Substance: PRAVASTATIN SODIUM
     Dates: start: 20090226
  11. CARVEDILOL. [Concomitant]
     Active Substance: CARVEDILOL
  12. IMDUR [Concomitant]
     Active Substance: ISOSORBIDE MONONITRATE
     Dates: start: 20070627
  13. BYETTA [Suspect]
     Active Substance: EXENATIDE
     Indication: TYPE 2 DIABETES MELLITUS
     Route: 065
     Dates: start: 200707
  14. LORAZEPAM. [Concomitant]
     Active Substance: LORAZEPAM
     Indication: ANXIETY
  15. ENALAPRIL [Concomitant]
     Active Substance: ENALAPRIL
     Dates: start: 20070627
  16. BYETTA [Suspect]
     Active Substance: EXENATIDE
     Indication: TYPE 2 DIABETES MELLITUS
     Route: 058
     Dates: start: 20120430
  17. SYNTHROID [Concomitant]
     Active Substance: LEVOTHYROXINE SODIUM
  18. ATARAX [Concomitant]
     Active Substance: HYDROXYZINE\HYDROXYZINE HYDROCHLORIDE
     Indication: PRURITUS
  19. ASPIRIN. [Concomitant]
     Active Substance: ASPIRIN
     Dates: start: 20070627
  20. ISOSORBIDE. [Concomitant]
     Active Substance: ISOSORBIDE
     Dates: start: 20071114

REACTIONS (7)
  - Hypothyroidism [Unknown]
  - Metastases to liver [Unknown]
  - Metastases to spine [Unknown]
  - Papillary thyroid cancer [Fatal]
  - Metastases to bone [Unknown]
  - Metastases to spleen [Unknown]
  - Metastases to lymph nodes [Unknown]

NARRATIVE: CASE EVENT DATE: 20120225
